FAERS Safety Report 23668011 (Version 1)
Quarter: 2024Q1

REPORT INFORMATION
  Report Type: Spontaneous
  Country: US (occurrence: None)
  Receive Date: 20240322
  Receipt Date: 20240322
  Transmission Date: 20240410
  Serious: Yes (Hospitalization)
  Sender: FDA-Public Use
  Company Number: None

PATIENT
  Age: 49 Year
  Sex: Female
  Weight: 69.5 kg

DRUGS (8)
  1. TRASTUZUMAB DERUXTECAN [Suspect]
     Active Substance: TRASTUZUMAB DERUXTECAN
     Indication: Breast cancer metastatic
     Dosage: 360 MG OHTER INTRAVENOUS DRIP?
     Route: 041
     Dates: start: 20240220, end: 20240220
  2. GABAPENTIN [Concomitant]
  3. LEVOTHYROXINE [Concomitant]
  4. LORATADINE [Concomitant]
  5. LORAZEPAM [Concomitant]
  6. PANTOPRAZOLE [Concomitant]
  7. NAMENDA [Concomitant]
     Active Substance: MEMANTINE HYDROCHLORIDE
  8. PYRIDOXINE [Concomitant]

REACTIONS (3)
  - Acute respiratory failure [None]
  - Sepsis [None]
  - Lung infiltration [None]

NARRATIVE: CASE EVENT DATE: 20240308
